FAERS Safety Report 9273663 (Version 1)
Quarter: 2013Q2

REPORT INFORMATION
  Report Type: Spontaneous
  Country: US (occurrence: US)
  Receive Date: 20130506
  Receipt Date: 20130506
  Transmission Date: 20140414
  Serious: No
  Sender: FDA-Public Use
  Company Number: US-AMGEN-USASP2013030606

PATIENT
  Age: 63 Year
  Sex: Female
  Weight: 80.73 kg

DRUGS (11)
  1. ENBREL [Suspect]
     Indication: RHEUMATOID ARTHRITIS
     Dosage: UNK
  2. HUMIRA [Suspect]
     Indication: RHEUMATOID ARTHRITIS
     Dosage: 40 MG, IN 2 WEEKS
     Route: 058
     Dates: start: 201208, end: 20130326
  3. METHOTREXATE [Concomitant]
     Dosage: UNK
  4. FOLIC ACID [Concomitant]
     Dosage: UNK
  5. BIOTIN [Concomitant]
     Dosage: UNK
  6. ZINC [Concomitant]
     Dosage: UNK
  7. CALCIUM [Concomitant]
     Dosage: UNK
  8. VITAMIN B12                        /00056201/ [Concomitant]
     Dosage: UNK
  9. ETODOLAC [Concomitant]
     Dosage: UNK
  10. PREDNISONE [Concomitant]
     Dosage: UNK
  11. ZETIA [Concomitant]
     Indication: BLOOD CHOLESTEROL INCREASED
     Dosage: UNK

REACTIONS (4)
  - Cough [Unknown]
  - Productive cough [Unknown]
  - Therapeutic response decreased [Unknown]
  - Pneumonia [Recovered/Resolved]
